FAERS Safety Report 10689368 (Version 1)
Quarter: 2014Q4

REPORT INFORMATION
  Report Type: Spontaneous
  Country: GB (occurrence: None)
  Receive Date: 20141231
  Receipt Date: 20141231
  Transmission Date: 20150529
  Serious: Yes (Other)
  Sender: FDA-Public Use
  Company Number: NL01PV14.38222

PATIENT
  Age: 32 Year
  Sex: Male

DRUGS (1)
  1. UNKNOWN (TAMSULOSIN) UNKNOWN [Suspect]
     Active Substance: TAMSULOSIN
     Indication: URINARY TRACT OBSTRUCTION
     Dates: start: 20141208

REACTIONS (5)
  - Malaise [None]
  - Nasal congestion [None]
  - Throat tightness [None]
  - Confusional state [None]
  - Dizziness [None]
